FAERS Safety Report 12211927 (Version 2)
Quarter: 2016Q2

REPORT INFORMATION
  Report Type: Spontaneous
  Country: US (occurrence: US)
  Receive Date: 20160325
  Receipt Date: 20160413
  Transmission Date: 20160815
  Serious: Yes (Death, Hospitalization, Other)
  Sender: FDA-Public Use
  Company Number: US-MDT-ADR-2016-00509

PATIENT
  Age: 31 Year
  Sex: Female

DRUGS (1)
  1. BACLOFEN. [Suspect]
     Active Substance: BACLOFEN
     Indication: MUSCLE SPASTICITY
     Route: 037

REACTIONS (5)
  - Death [None]
  - Septic shock [Fatal]
  - Overdose [Fatal]
  - Unevaluable event [Fatal]
  - Malaise [Fatal]

NARRATIVE: CASE EVENT DATE: 20150920
